FAERS Safety Report 4609593-2 (Version None)
Quarter: 2005Q1

REPORT INFORMATION
  Report Type: 
  Country: None (occurrence: None)
  Receive Date: 20050314
  Receipt Date: 20050302
  Transmission Date: 20050727
  Serious: No
  Sender: FDA-Public Use
  Company Number: CH-2005-003128

PATIENT
  Age: 70 Year
  Sex: Male

DRUGS (3)
  1. FLUDARABINE PHOSPHATE [Suspect]
     Indication: B-CELL LYMPHOMA
     Dosage: 6 CYCLES
     Dates: start: 20010101, end: 20010101
  2. FLUDARABINE PHOSPHATE [Suspect]
     Indication: B-CELL LYMPHOMA
     Dosage: 6 CYCLES
     Dates: start: 20020101, end: 20020101
  3. RITUXIMAB [Concomitant]

REACTIONS (5)
  - IMMUNODEFICIENCY [None]
  - KERATOACANTHOMA [None]
  - MALIGNANT NEOPLASM PROGRESSION [None]
  - NEOPLASM RECURRENCE [None]
  - SQUAMOUS CELL CARCINOMA OF SKIN [None]
